FAERS Safety Report 10730010 (Version 1)
Quarter: 2015Q1

REPORT INFORMATION
  Report Type: Spontaneous
  Country: US (occurrence: US)
  Receive Date: 20150122
  Receipt Date: 20150122
  Transmission Date: 20150721
  Serious: Yes (Death)
  Sender: FDA-Public Use
  Company Number: US-BAUSCH-BL-2015-000927

PATIENT
  Age: 67 Year
  Sex: Male

DRUGS (2)
  1. HELIUM. [Suspect]
     Active Substance: HELIUM
     Indication: PRODUCT USED FOR UNKNOWN INDICATION
  2. ZOLPIDEM [Suspect]
     Active Substance: ZOLPIDEM\ZOLPIDEM TARTRATE
     Indication: PRODUCT USED FOR UNKNOWN INDICATION

REACTIONS (2)
  - Exposure via ingestion [None]
  - Completed suicide [Fatal]

NARRATIVE: CASE EVENT DATE: 2013
